FAERS Safety Report 5918046-0 (Version None)
Quarter: 2008Q4

REPORT INFORMATION
  Report Type: 
  Country: None (occurrence: None)
  Receive Date: 20081014
  Receipt Date: 20081002
  Transmission Date: 20090506
  Serious: Yes (Disabling)
  Sender: FDA-Public Use
  Company Number: GB-PFIZER INC-2008083623

PATIENT
  Sex: Female

DRUGS (11)
  1. LINEZOLID [Suspect]
     Indication: STAPHYLOCOCCAL SEPSIS
     Route: 048
     Dates: start: 20080904, end: 20080906
  2. CALCIUM ACETATE [Concomitant]
  3. FENTANYL [Concomitant]
  4. GENTAMICIN [Concomitant]
     Route: 042
     Dates: start: 20080829, end: 20080901
  5. HUMALOG [Concomitant]
  6. LANTUS [Concomitant]
  7. ACETAMINOPHEN [Concomitant]
  8. RENAGEL [Concomitant]
  9. SIMVASTATIN [Concomitant]
  10. VANCOMYCIN HYDROCHLORIDE [Concomitant]
     Route: 042
     Dates: start: 20080830
  11. WARFARIN SODIUM [Concomitant]

REACTIONS (2)
  - DEAFNESS [None]
  - DYSPHAGIA [None]
